FAERS Safety Report 10209839 (Version 4)
Quarter: 2014Q3

REPORT INFORMATION
  Report Type: Spontaneous
  Country: US (occurrence: US)
  Receive Date: 20140602
  Receipt Date: 20140715
  Transmission Date: 20150326
  Serious: Yes (Other)
  Sender: FDA-Public Use
  Company Number: PHEH2014US010856

PATIENT
  Sex: Female

DRUGS (5)
  1. AREDIA [Suspect]
     Active Substance: PAMIDRONATE DISODIUM
     Indication: HYPERCALCAEMIA
     Dosage: UNK UKN, UNK
     Route: 042
     Dates: start: 200604
  2. ZOMETA [Suspect]
     Active Substance: ZOLEDRONIC ACID
     Indication: METASTASES TO BONE
     Dosage: UNK UKN, UNK
     Route: 042
     Dates: start: 20020807, end: 20060310
  3. AREDIA [Suspect]
     Active Substance: PAMIDRONATE DISODIUM
     Indication: METASTASES TO BONE
     Dosage: 90 MG, UNK
     Route: 042
  4. ZOMETA [Suspect]
     Active Substance: ZOLEDRONIC ACID
     Indication: HYPERCALCAEMIA
     Dosage: UNK UKN, UNK
     Dates: end: 200711
  5. AREDIA [Suspect]
     Active Substance: PAMIDRONATE DISODIUM
     Dosage: UNK UKN, UNK
     Route: 042
     Dates: start: 20060602, end: 20071016

REACTIONS (14)
  - Gastrointestinal haemorrhage [Unknown]
  - Axillary mass [Unknown]
  - Hepatic lesion [Unknown]
  - Hypercholesterolaemia [Unknown]
  - Osteoarthritis [Unknown]
  - Lung consolidation [Unknown]
  - Ligament injury [Unknown]
  - Metastases to lung [Unknown]
  - Osteonecrosis of jaw [Unknown]
  - Bone fragmentation [Unknown]
  - Swelling [Unknown]
  - Musculoskeletal stiffness [Unknown]
  - Lymphoedema [Unknown]
  - Musculoskeletal pain [Unknown]
